FAERS Safety Report 15620960 (Version 1)
Quarter: 2018Q4

REPORT INFORMATION
  Report Type: Spontaneous
  Country: US (occurrence: US)
  Receive Date: 20181115
  Receipt Date: 20181115
  Transmission Date: 20190205
  Serious: No
  Sender: FDA-Public Use
  Company Number: US-SA-2018SA312897

PATIENT
  Sex: Male

DRUGS (1)
  1. ACT ANTICAVITY FLUORIDE MINT [Suspect]
     Active Substance: SODIUM FLUORIDE
     Indication: DENTAL CARIES
     Dosage: UNK, UNK

REACTIONS (5)
  - Dizziness [Unknown]
  - Pharyngeal hypoaesthesia [Unknown]
  - Radiculopathy [Unknown]
  - Oropharyngeal pain [Unknown]
  - Nausea [Unknown]
